FAERS Safety Report 20941359 (Version 2)
Quarter: 2022Q3

REPORT INFORMATION
  Report Type: Spontaneous
  Country: US (occurrence: US)
  Receive Date: 20220610
  Receipt Date: 20220829
  Transmission Date: 20221027
  Serious: Yes (Other)
  Sender: FDA-Public Use
  Company Number: US-SUN PHARMACEUTICAL INDUSTRIES LTD-2022R1-340358

PATIENT
  Age: 15 Year
  Sex: Female

DRUGS (5)
  1. CLONIDINE [Suspect]
     Active Substance: CLONIDINE
     Indication: Erythromelalgia
     Dosage: UNK
     Route: 065
  2. DULOXETINE [Suspect]
     Active Substance: DULOXETINE
     Indication: Erythromelalgia
     Dosage: UNK
     Route: 065
  3. GABAPENTIN [Suspect]
     Active Substance: GABAPENTIN
     Indication: Erythromelalgia
     Dosage: UNK
     Route: 065
  4. SERTRALINE [Suspect]
     Active Substance: SERTRALINE HYDROCHLORIDE
     Indication: Erythromelalgia
     Dosage: UNK
     Route: 065
  5. CLONIDINE [Suspect]
     Active Substance: CLONIDINE
     Indication: Erythromelalgia
     Dosage: UNK
     Route: 065

REACTIONS (1)
  - Drug ineffective [Unknown]
